FAERS Safety Report 7657608-X (Version None)
Quarter: 2011Q3

REPORT INFORMATION
  Report Type: 
  Country: None (occurrence: None)
  Receive Date: 20110804
  Receipt Date: 20110727
  Transmission Date: 20111222
  Serious: Yes (Hospitalization, Other)
  Sender: FDA-Public Use
  Company Number: US-AMGEN-USASP2011038130

PATIENT
  Age: 54 Year
  Sex: Female

DRUGS (1)
  1. ENBREL [Suspect]
     Indication: RHEUMATOID ARTHRITIS
     Dosage: 50 MG, QWK
     Dates: start: 20040401, end: 20091021

REACTIONS (7)
  - BACK PAIN [None]
  - STAPHYLOCOCCAL INFECTION [None]
  - POST PROCEDURAL INFECTION [None]
  - LOCALISED INFECTION [None]
  - PARAPLEGIA [None]
  - RHEUMATOID ARTHRITIS [None]
  - TOOTH EXTRACTION [None]
